FAERS Safety Report 5845264-2 (Version None)
Quarter: 2008Q3

REPORT INFORMATION
  Report Type: 
  Country: None (occurrence: None)
  Receive Date: 20080814
  Receipt Date: 20080806
  Transmission Date: 20090109
  Serious: Yes (Other)
  Sender: FDA-Public Use
  Company Number: US-ASTRAZENECA-2005UW13079

PATIENT
  Sex: Female

DRUGS (4)
  1. ARIMIDEX [Suspect]
     Indication: BREAST CANCER
     Route: 048
     Dates: start: 20041101
  2. SUPPLEMENTS [Concomitant]
  3. CALCIUM [Concomitant]
  4. VITAMIN D [Concomitant]

REACTIONS (6)
  - ARTHRALGIA [None]
  - COUGH [None]
  - LOSS OF LIBIDO [None]
  - MYALGIA [None]
  - OSTEOPOROSIS [None]
  - VULVOVAGINAL DRYNESS [None]
